FAERS Safety Report 9946170 (Version 3)
Quarter: 2014Q1

REPORT INFORMATION
  Report Type: Report from Study
  Country: US (occurrence: US)
  Receive Date: 20140303
  Receipt Date: 20140314
  Transmission Date: 20141002
  Serious: No
  Sender: FDA-Public Use
  Company Number: PHEH2014US000633

PATIENT
  Age: 76 Year
  Sex: Female

DRUGS (14)
  1. TASIGNA [Suspect]
     Indication: CHRONIC MYELOID LEUKAEMIA
     Dosage: 400 MG, DAILY
     Route: 048
     Dates: start: 20130116
  2. METAMUCIL [Concomitant]
     Dosage: UNK UKN, UNK
  3. ASPIRIN [Concomitant]
     Dosage: UNK UKN, UNK
  4. OMEGA 3 COMPLEX [Concomitant]
     Dosage: UNK UKN, UNK
  5. MULTI-VIT [Concomitant]
     Dosage: UNK UKN, UNK
  6. PREMARIN [Concomitant]
     Dosage: UNK UKN, UNK
  7. GLUCOSAMINE [Concomitant]
     Dosage: UNK UKN, UNK
  8. SINGULAIR [Concomitant]
     Dosage: UNK UKN, UNK
  9. FUROSEMIDE [Concomitant]
     Dosage: UNK UKN, UNK
  10. CALCIUM [Concomitant]
     Dosage: UNK UKN, UNK
  11. VIT D [Concomitant]
     Dosage: UNK UKN, UNK
  12. VITAMIN B 12 [Concomitant]
     Dosage: UNK UKN, UNK
  13. SUDAFED [Concomitant]
     Dosage: UNK UKN, UNK
  14. TYLENOL [Concomitant]
     Dosage: UNK UKN, UNK

REACTIONS (4)
  - Rhinorrhoea [Not Recovered/Not Resolved]
  - Asthenopia [Unknown]
  - Nasopharyngitis [Unknown]
  - Influenza [Unknown]
